FAERS Safety Report 11800474 (Version 1)
Quarter: 2015Q4

REPORT INFORMATION
  Report Type: Spontaneous
  Country: US (occurrence: US)
  Receive Date: 20151203
  Receipt Date: 20151203
  Transmission Date: 20160305
  Serious: No
  Sender: FDA-Public Use
  Company Number: US-B.I. PHARMACEUTICALS,INC./RIDGEFIELD-2015-BI-65819BP

PATIENT
  Age: 4 Decade
  Sex: Male

DRUGS (2)
  1. GLYXAMBI [Suspect]
     Active Substance: EMPAGLIFLOZIN\LINAGLIPTIN
     Indication: PRODUCT USED FOR UNKNOWN INDICATION
     Dosage: DOSE PER APPLICATION: 10 MG/ 5 MG
     Route: 065
     Dates: start: 201412, end: 201506
  2. GLYXAMBI [Suspect]
     Active Substance: EMPAGLIFLOZIN\LINAGLIPTIN
     Dosage: DOSE PER APPLICATION: 10 MG/ 5 MG
     Route: 065
     Dates: start: 201507, end: 201507

REACTIONS (2)
  - Genital infection fungal [Recovered/Resolved]
  - Genital infection fungal [Recovered/Resolved]

NARRATIVE: CASE EVENT DATE: 201506
